FAERS Safety Report 4476514-5 (Version None)
Quarter: 2004Q4

REPORT INFORMATION
  Report Type: 
  Country: None (occurrence: None)
  Receive Date: 20041013
  Receipt Date: 20040721
  Transmission Date: 20050328
  Serious: Yes (Other)
  Sender: FDA-Public Use
  Company Number: A03200402405

PATIENT
  Age: 76 Year
  Sex: Female
  Weight: 51.2565 kg

DRUGS (4)
  1. PLAVIX [Suspect]
     Indication: CORONARY ARTERY OCCLUSION
     Dosage: 75 MG QD - ORAL
     Route: 048
     Dates: start: 20030101, end: 20040820
  2. PLAVIX [Suspect]
     Indication: STENT PLACEMENT
     Dosage: 75 MG QD - ORAL
     Route: 048
     Dates: start: 20030101, end: 20040820
  3. ACETYLSALICYLIC ACID [Concomitant]
  4. FISH OIL [Concomitant]

REACTIONS (4)
  - BLOOD BLISTER [None]
  - EPISTAXIS [None]
  - ORAL MUCOSAL BLISTERING [None]
  - PEMPHIGUS [None]
